FAERS Safety Report 5647613-7 (Version None)
Quarter: 2008Q1

REPORT INFORMATION
  Report Type: 
  Country: None (occurrence: None)
  Receive Date: 20080131
  Receipt Date: 20071226
  Transmission Date: 20080703
  Serious: No
  Sender: FDA-Public Use
  Company Number: 163-21880-07121429

PATIENT
  Age: 83 Year
  Sex: Male

DRUGS (4)
  1. REVLIMID [Suspect]
     Indication: MULTIPLE MYELOMA
     Dosage: 10 MG, DAILY FOR 21 DAYS EVERY 28 DAYS, ORAL ; 5 MG, 1 IN 1 D, ORAL
     Route: 048
     Dates: start: 20071101, end: 20071201
  2. REVLIMID [Suspect]
     Indication: NEOPLASM
     Dosage: 10 MG, DAILY FOR 21 DAYS EVERY 28 DAYS, ORAL ; 5 MG, 1 IN 1 D, ORAL
     Route: 048
     Dates: start: 20071101, end: 20071201
  3. REVLIMID [Suspect]
     Indication: MULTIPLE MYELOMA
     Dosage: 10 MG, DAILY FOR 21 DAYS EVERY 28 DAYS, ORAL ; 5 MG, 1 IN 1 D, ORAL
     Route: 048
     Dates: start: 20071205
  4. REVLIMID [Suspect]
     Indication: NEOPLASM
     Dosage: 10 MG, DAILY FOR 21 DAYS EVERY 28 DAYS, ORAL ; 5 MG, 1 IN 1 D, ORAL
     Route: 048
     Dates: start: 20071205

REACTIONS (2)
  - CHILLS [None]
  - HYPOAESTHESIA [None]
